FAERS Safety Report 21086114 (Version 2)
Quarter: 2022Q3

REPORT INFORMATION
  Report Type: Spontaneous
  Country: FR (occurrence: FR)
  Receive Date: 20220715
  Receipt Date: 20220908
  Transmission Date: 20221026
  Serious: Yes (Death, Life-Threatening, Other)
  Sender: FDA-Public Use
  Company Number: FR-ROCHE-3095154

PATIENT
  Age: 86 Year
  Sex: Male
  Weight: 61 kg

DRUGS (4)
  1. PACLITAXEL [Suspect]
     Active Substance: PACLITAXEL
     Indication: Neoplasm malignant
     Dosage: 2 WEEK(ON 11/JAN/2022, MOST RECENT DOSE (150 MG) OF PACLITAXEL PRIOR TO AE/SAE )
     Route: 042
     Dates: start: 20211222, end: 20220112
  2. OXALIPLATIN [Suspect]
     Active Substance: OXALIPLATIN
     Indication: Neoplasm malignant
     Dosage: UNK, 2 WEEK
     Route: 042
     Dates: start: 20210113, end: 20210330
  3. FOLIC ACID [Suspect]
     Active Substance: FOLIC ACID
     Indication: Neoplasm malignant
     Dosage: UNK, EVERY 2 WEEKS
     Route: 042
     Dates: start: 20210113, end: 20210330
  4. FLUOROURACIL [Suspect]
     Active Substance: FLUOROURACIL
     Indication: Neoplasm malignant
     Dosage: UNK
     Route: 065
     Dates: start: 20210113, end: 20210330

REACTIONS (1)
  - Condition aggravated [Fatal]

NARRATIVE: CASE EVENT DATE: 20220111
